FAERS Safety Report 7435280-1 (Version None)
Quarter: 2011Q2

REPORT INFORMATION
  Report Type: 
  Country: None (occurrence: None)
  Receive Date: 20110425
  Receipt Date: 20110414
  Transmission Date: 20111010
  Serious: Yes (Other)
  Sender: FDA-Public Use
  Company Number: CA-JNJFOC-20090701920

PATIENT
  Sex: Male
  Weight: 84 kg

DRUGS (21)
  1. CNTO 1275 [Suspect]
     Route: 058
  2. CNTO 1275 [Suspect]
     Route: 058
  3. VITAMIN D [Concomitant]
     Indication: PROPHYLAXIS
     Route: 048
  4. CNTO 1275 [Suspect]
     Route: 058
  5. CNTO 1275 [Suspect]
     Route: 058
  6. ASAPHEN [Concomitant]
     Indication: PROPHYLAXIS
     Route: 048
  7. SOTALOL HCL [Concomitant]
     Indication: PROPHYLAXIS
     Route: 048
  8. CNTO 1275 [Suspect]
     Indication: PSORIASIS
     Route: 058
  9. CNTO 1275 [Suspect]
     Route: 058
  10. CNTO 1275 [Suspect]
     Route: 058
  11. CNTO 1275 [Suspect]
     Route: 058
  12. CNTO 1275 [Suspect]
     Route: 058
  13. CNTO 1275 [Suspect]
     Route: 058
  14. LIPITOR [Concomitant]
     Indication: HYPERCHOLESTEROLAEMIA
     Route: 048
  15. CNTO 1275 [Suspect]
     Route: 058
  16. ACTONEL [Concomitant]
     Indication: PROPHYLAXIS
     Route: 048
  17. CNTO 1275 [Suspect]
     Route: 058
  18. CNTO 1275 [Suspect]
     Route: 058
  19. CNTO 1275 [Suspect]
     Route: 058
  20. PRILOSEC [Concomitant]
     Indication: PROPHYLAXIS
     Route: 048
  21. CNTO 1275 [Suspect]
     Route: 058

REACTIONS (1)
  - PANCREATIC CARCINOMA METASTATIC [None]
